FAERS Safety Report 10364542 (Version 1)
Quarter: 2014Q3

REPORT INFORMATION
  Report Type: Spontaneous
  Country: US (occurrence: US)
  Receive Date: 20140806
  Receipt Date: 20140806
  Transmission Date: 20150326
  Serious: Yes (Other)
  Sender: FDA-Public Use
  Company Number: US-ASTRAZENECA-2014SE55154

PATIENT
  Sex: Female

DRUGS (1)
  1. NEXIUM [Suspect]
     Active Substance: ESOMEPRAZOLE MAGNESIUM
     Indication: GASTROOESOPHAGEAL REFLUX DISEASE
     Dosage: UNK
     Route: 048

REACTIONS (7)
  - Drug dose omission [Unknown]
  - Tearfulness [Unknown]
  - Aphonia [Unknown]
  - Intentional product misuse [Not Recovered/Not Resolved]
  - Duodenal neoplasm [Unknown]
  - Throat irritation [Unknown]
  - Gastrooesophageal reflux disease [Unknown]
